FAERS Safety Report 8190980-3 (Version None)
Quarter: 2012Q1

REPORT INFORMATION
  Report Type: 
  Country: None (occurrence: None)
  Receive Date: 20120307
  Receipt Date: 20120229
  Transmission Date: 20120608
  Serious: Yes (Hospitalization)
  Sender: FDA-Public Use
  Company Number: DE-ROCHE-1044973

PATIENT
  Sex: Female
  Weight: 73 kg

DRUGS (2)
  1. BENDAMUSTINE [Suspect]
     Indication: NON-HODGKIN'S LYMPHOMA
     Route: 042
     Dates: start: 20100619, end: 20101209
  2. MABTHERA [Suspect]
     Indication: NON-HODGKIN'S LYMPHOMA
     Route: 042
     Dates: start: 20100619, end: 20101209

REACTIONS (2)
  - CYTOMEGALOVIRUS COLITIS [None]
  - DEHYDRATION [None]
